FAERS Safety Report 5725454-X (Version None)
Quarter: 2008Q2

REPORT INFORMATION
  Report Type: 
  Country: None (occurrence: None)
  Receive Date: 20080501
  Receipt Date: 20080422
  Transmission Date: 20081010
  Serious: Yes (Hospitalization, Other)
  Sender: FDA-Public Use
  Company Number: US-PFIZER INC-2008035501

PATIENT
  Sex: Male
  Weight: 83.9 kg

DRUGS (8)
  1. CHANTIX [Suspect]
     Indication: SMOKING CESSATION THERAPY
     Route: 048
  2. DILANTIN [Suspect]
     Indication: CONVULSION
  3. ALPRAZOLAM [Suspect]
     Indication: ANXIETY
  4. PLAVIX [Concomitant]
  5. ATACAND [Concomitant]
  6. ACETYLSALICYLIC ACID SRT [Concomitant]
  7. NEXIUM [Concomitant]
  8. NITRGLYCERIN TRANSDERMAL SYSTEM [Concomitant]

REACTIONS (7)
  - ANXIETY [None]
  - CEREBROVASCULAR ACCIDENT [None]
  - INTENTIONAL DRUG MISUSE [None]
  - NERVOUSNESS [None]
  - ORAL SURGERY [None]
  - POST PROCEDURAL COMPLICATION [None]
  - THROMBOSIS [None]
